FAERS Safety Report 7476113-7 (Version None)
Quarter: 2011Q2

REPORT INFORMATION
  Report Type: 
  Country: None (occurrence: None)
  Receive Date: 20110512
  Receipt Date: 20110509
  Transmission Date: 20111010
  Serious: Yes (Other)
  Sender: FDA-Public Use
  Company Number: BR-PFIZER INC-2011095049

PATIENT
  Age: 41 Year
  Sex: Female
  Weight: 90 kg

DRUGS (3)
  1. DEPO-PROVERA [Suspect]
     Indication: MENSTRUAL DISCOMFORT
     Dosage: 150 MG, UNK
     Route: 030
     Dates: end: 20090101
  2. DEPO-PROVERA [Suspect]
     Dosage: 150 MG, UNK
     Route: 030
     Dates: end: 20101001
  3. DEPO-PROVERA [Suspect]
     Indication: CONTRACEPTION
     Dosage: 150 MG, EVERY 3 MONTHS
     Route: 030
     Dates: start: 20010101, end: 20030101

REACTIONS (3)
  - NEPHROLITHIASIS [None]
  - HORMONE LEVEL ABNORMAL [None]
  - AMENORRHOEA [None]
